FAERS Safety Report 4897103-4 (Version None)
Quarter: 2006Q1

REPORT INFORMATION
  Report Type: 
  Country: None (occurrence: None)
  Receive Date: 20060127
  Receipt Date: 20060119
  Transmission Date: 20060701
  Serious: Yes (Other)
  Sender: FDA-Public Use
  Company Number: 2006009858

PATIENT
  Age: 27 Year
  Sex: Female
  Weight: 58.9676 kg

DRUGS (2)
  1. ACTIFED [Suspect]
     Indication: HYPERSENSITIVITY
     Dosage: 1 TABLET ONCE TO TWICE A DAY, ORAL
     Route: 048
  2. IBUPROFEN [Concomitant]

REACTIONS (1)
  - DRUG DEPENDENCE [None]
